FAERS Safety Report 9484340 (Version 1)
Quarter: 2013Q3

REPORT INFORMATION
  Report Type: Spontaneous
  Country: US (occurrence: US)
  Receive Date: 20130828
  Receipt Date: 20130828
  Transmission Date: 20140515
  Serious: Yes (Other)
  Sender: FDA-Public Use
  Company Number: US-AMGEN-KDL403059

PATIENT
  Age: 45 Year
  Sex: Male
  Weight: 86.3 kg

DRUGS (2)
  1. ENBREL [Suspect]
     Indication: PRODUCT USED FOR UNKNOWN INDICATION
     Dosage: 50 MG, QWK
     Route: 058
  2. FISH OIL [Concomitant]
     Dosage: UNK UNK, UNK

REACTIONS (7)
  - Chest discomfort [Unknown]
  - Dyspnoea [Unknown]
  - Muscle tightness [Unknown]
  - Tinnitus [Unknown]
  - Injection site reaction [Unknown]
  - Injection site erythema [Unknown]
  - Injection site pruritus [Unknown]
